FAERS Safety Report 23048904 (Version 1)
Quarter: 2023Q4

REPORT INFORMATION
  Report Type: Spontaneous
  Country: PL (occurrence: PL)
  Receive Date: 20231010
  Receipt Date: 20231010
  Transmission Date: 20240110
  Serious: Yes (Other)
  Sender: FDA-Public Use
  Company Number: PL-URPL-DML-MLP.4401.1.4582.2021

PATIENT
  Age: 20 Year
  Sex: Female
  Weight: 85 kg

DRUGS (1)
  1. ACETAMINOPHEN [Suspect]
     Active Substance: ACETAMINOPHEN
     Indication: Product used for unknown indication
     Dosage: 7.5 GRAM
     Route: 048
     Dates: start: 20210731, end: 20210731

REACTIONS (2)
  - Suicide attempt [Recovering/Resolving]
  - Toxicity to various agents [Recovering/Resolving]

NARRATIVE: CASE EVENT DATE: 20210731
